FAERS Safety Report 6240092-0 (Version None)
Quarter: 2009Q2

REPORT INFORMATION
  Report Type: 
  Country: None (occurrence: None)
  Receive Date: 20090617
  Receipt Date: 20080219
  Transmission Date: 20091009
  Serious: No
  Sender: FDA-Public Use
  Company Number: 272502

PATIENT
  Age: 65 Year
  Sex: Male

DRUGS (3)
  1. LEVEMIR [Suspect]
     Indication: TYPE 2 DIABETES MELLITUS
     Dosage: 23 LU, SUBCUTANEOUS
     Route: 058
     Dates: start: 20070101
  2. BYETTA (EXENATIDE, EXENATIDE) [Concomitant]
  3. ASPIRIN [Concomitant]

REACTIONS (2)
  - INJECTION SITE HAEMATOMA [None]
  - INJECTION SITE PAIN [None]
